FAERS Safety Report 7898029-4 (Version None)
Quarter: 2011Q4

REPORT INFORMATION
  Report Type: 
  Country: None (occurrence: None)
  Receive Date: 20111107
  Receipt Date: 20111107
  Transmission Date: 20120403
  Serious: Yes (Other)
  Sender: FDA-Public Use
  Company Number: None

PATIENT
  Age: 52 Year
  Sex: Male
  Weight: 102.51 kg

DRUGS (1)
  1. ALLER-TEC [Suspect]
     Indication: SEASONAL ALLERGY
     Dosage: 10 MG
     Route: 048
     Dates: start: 20100925, end: 20111105

REACTIONS (5)
  - PRURITUS [None]
  - WITHDRAWAL SYNDROME [None]
  - ECZEMA [None]
  - DERMATITIS [None]
  - RASH GENERALISED [None]
